FAERS Safety Report 11011116 (Version 1)
Quarter: 2015Q2

REPORT INFORMATION
  Report Type: Spontaneous
  Country: US (occurrence: US)
  Receive Date: 20150410
  Receipt Date: 20150410
  Transmission Date: 20150821
  Serious: Yes (Death, Hospitalization)
  Sender: FDA-Public Use
  Company Number: US-UNITED THERAPEUTICS-UNT-2015-004179

PATIENT
  Age: 58 Year
  Sex: Female
  Weight: 81 kg

DRUGS (1)
  1. REMODULIN [Suspect]
     Active Substance: TREPROSTINIL
     Indication: PULMONARY HYPERTENSION
     Dosage: 0.01 ?G/KG, UNK
     Route: 058
     Dates: start: 20150219

REACTIONS (4)
  - Death [Fatal]
  - Sepsis [Unknown]
  - Lethargy [Unknown]
  - Pyrexia [Unknown]

NARRATIVE: CASE EVENT DATE: 20150330
